FAERS Safety Report 16627394 (Version 2)
Quarter: 2019Q3

REPORT INFORMATION
  Report Type: Spontaneous
  Country: US (occurrence: US)
  Receive Date: 20190724
  Receipt Date: 20190813
  Transmission Date: 20191004
  Serious: No
  Sender: FDA-Public Use
  Company Number: US-SHIRE-US201923638

PATIENT
  Sex: Female

DRUGS (4)
  1. MOTEGRITY [Suspect]
     Active Substance: PRUCALOPRIDE SUCCINATE
     Indication: CONSTIPATION
     Dosage: UNK UNK, QOD
     Route: 065
     Dates: start: 201904
  2. MOTEGRITY [Suspect]
     Active Substance: PRUCALOPRIDE SUCCINATE
     Dosage: 1 MILLIGRAM, QOD
     Route: 065
  3. MOTEGRITY [Suspect]
     Active Substance: PRUCALOPRIDE SUCCINATE
     Dosage: 0.25 MILLIGRAM, QOD
     Route: 065
     Dates: start: 201904
  4. MOTEGRITY [Suspect]
     Active Substance: PRUCALOPRIDE SUCCINATE
     Dosage: 1 MILLIGRAM, 1X/DAY:QD
     Route: 065
     Dates: start: 201904

REACTIONS (4)
  - Malaise [Unknown]
  - Frustration tolerance decreased [Unknown]
  - Off label use [Unknown]
  - Fatigue [Unknown]
